FAERS Safety Report 13282404 (Version 1)
Quarter: 2017Q1

REPORT INFORMATION
  Report Type: Spontaneous
  Country: TH (occurrence: TH)
  Receive Date: 20170301
  Receipt Date: 20170301
  Transmission Date: 20170428
  Serious: Yes (Other)
  Sender: FDA-Public Use
  Company Number: TH-SCIEGEN PHARMACEUTICALS INC-2017SCILIT00152

PATIENT
  Age: 59 Year
  Sex: Female

DRUGS (4)
  1. DONEPEZIL HYDROCHLORIDE TABLETS, USP [Suspect]
     Active Substance: DONEPEZIL HYDROCHLORIDE
     Dosage: 23 MG, QD
     Route: 065
  2. DONEPEZIL HYDROCHLORIDE TABLETS, USP [Suspect]
     Active Substance: DONEPEZIL HYDROCHLORIDE
     Dosage: 10 MG, QD
     Route: 065
  3. DONEPEZIL HYDROCHLORIDE TABLETS, USP [Suspect]
     Active Substance: DONEPEZIL HYDROCHLORIDE
     Dosage: 15 MG, QD
     Route: 065
  4. DONEPEZIL HYDROCHLORIDE TABLETS, USP [Suspect]
     Active Substance: DONEPEZIL HYDROCHLORIDE
     Indication: DEMENTIA ALZHEIMER^S TYPE
     Dosage: 10 MG, QD
     Route: 065

REACTIONS (1)
  - Parkinsonism [Recovering/Resolving]
